FAERS Safety Report 25283077 (Version 1)
Quarter: 2025Q2

REPORT INFORMATION
  Report Type: Report from Study
  Country: US (occurrence: US)
  Receive Date: 20250508
  Receipt Date: 20250508
  Transmission Date: 20250716
  Serious: Yes (Other)
  Sender: ABBVIE
  Company Number: US-ABBVIE-6271268

PATIENT
  Sex: Female

DRUGS (1)
  1. RINVOQ [Suspect]
     Active Substance: UPADACITINIB
     Indication: Product used for unknown indication
     Route: 048
     Dates: start: 202411

REACTIONS (6)
  - Gastrointestinal haemorrhage [Unknown]
  - Weight decreased [Unknown]
  - Gastric infection [Unknown]
  - Dyspepsia [Unknown]
  - Melaena [Unknown]
  - Dysphagia [Unknown]
